FAERS Safety Report 23985955 (Version 5)
Quarter: 2025Q1

REPORT INFORMATION
  Report Type: Spontaneous
  Country: US (occurrence: US)
  Receive Date: 20240618
  Receipt Date: 20250121
  Transmission Date: 20250408
  Serious: No
  Sender: CALLIDITAS THERAPEUTICS AB
  Company Number: US-Calliditas-2024CAL01046

PATIENT
  Age: 19 Year
  Sex: Male
  Weight: 92.6 kg

DRUGS (1)
  1. TARPEYO [Suspect]
     Active Substance: BUDESONIDE
     Indication: IgA nephropathy
     Route: 048
     Dates: start: 20231206

REACTIONS (6)
  - Attention deficit hyperactivity disorder [Recovering/Resolving]
  - Inappropriate schedule of product administration [Recovered/Resolved]
  - Hair growth abnormal [Not Recovered/Not Resolved]
  - Acne [Unknown]
  - Affect lability [Unknown]
  - Weight increased [Unknown]

NARRATIVE: CASE EVENT DATE: 20240517
